FAERS Safety Report 10354190 (Version 1)
Quarter: 2014Q3

REPORT INFORMATION
  Report Type: Spontaneous
  Country: US (occurrence: None)
  Receive Date: 20140729
  Receipt Date: 20140729
  Transmission Date: 20150326
  Serious: No
  Sender: FDA-Public Use
  Company Number: None

PATIENT

DRUGS (1)
  1. BUPIVACAINE 0.75 % [Suspect]
     Active Substance: BUPIVACAINE

REACTIONS (1)
  - Drug ineffective [None]
